FAERS Safety Report 10151351 (Version 1)
Quarter: 2014Q2

REPORT INFORMATION
  Report Type: Spontaneous
  Country: US (occurrence: US)
  Receive Date: 20140502
  Receipt Date: 20140502
  Transmission Date: 20141212
  Serious: No
  Sender: FDA-Public Use
  Company Number: US-ASTRAZENECA-2013SE69633

PATIENT
  Age: 59 Year
  Sex: Female

DRUGS (3)
  1. PRILOSEC OTC [Suspect]
     Route: 048
     Dates: start: 20130910, end: 20130910
  2. KLONOPIN [Concomitant]
     Dosage: UNKNOWN
  3. LIDOCAINE [Concomitant]
     Dosage: UNKNOWN

REACTIONS (5)
  - Balance disorder [Unknown]
  - Photophobia [Unknown]
  - Dizziness [Unknown]
  - Vision blurred [Unknown]
  - Inappropriate schedule of drug administration [Unknown]
